FAERS Safety Report 5849397-6 (Version None)
Quarter: 2008Q3

REPORT INFORMATION
  Report Type: 
  Country: None (occurrence: None)
  Receive Date: 20080815
  Receipt Date: 20080807
  Transmission Date: 20090109
  Serious: Yes (Other)
  Sender: FDA-Public Use
  Company Number: GXKR2008GB07432

PATIENT
  Age: 41 Year
  Sex: Female

DRUGS (2)
  1. TRIMETHOPRIM [Suspect]
     Dosage: 200 MG, BID, ORAL
     Route: 048
     Dates: start: 20071121, end: 20071201
  2. CERAZETTE (DESOGESTREL) [Suspect]
     Dosage: 75 MG, QD, ORAL
     Route: 048
     Dates: start: 20070910

REACTIONS (6)
  - ABORTION SPONTANEOUS [None]
  - AMENORRHOEA [None]
  - DRUG EXPOSURE DURING PREGNANCY [None]
  - MENSTRUAL DISORDER [None]
  - PREGNANCY ON ORAL CONTRACEPTIVE [None]
  - UNWANTED PREGNANCY [None]
